FAERS Safety Report 12184561 (Version 4)
Quarter: 2016Q3

REPORT INFORMATION
  Report Type: Report from Study
  Country: PR (occurrence: PR)
  Receive Date: 20160316
  Receipt Date: 20160808
  Transmission Date: 20161109
  Serious: Yes (Hospitalization, Other)
  Sender: FDA-Public Use
  Company Number: PR-ABBVIE-16K-131-1579572-00

PATIENT
  Sex: Female
  Weight: 50.85 kg

DRUGS (7)
  1. HUMIRA [Suspect]
     Active Substance: ADALIMUMAB
     Indication: PSORIATIC ARTHROPATHY
     Route: 058
     Dates: start: 2015
  2. ASPIRIN. [Concomitant]
     Active Substance: ASPIRIN
     Indication: ANTICOAGULANT THERAPY
     Route: 048
     Dates: start: 2013, end: 201602
  3. FUROSEMIDE. [Concomitant]
     Active Substance: FUROSEMIDE
     Indication: DIURETIC THERAPY
     Route: 048
  4. HUMIRA [Suspect]
     Active Substance: ADALIMUMAB
     Indication: PSORIASIS
  5. ASPIRIN. [Concomitant]
     Active Substance: ASPIRIN
     Route: 048
     Dates: start: 201603
  6. PEPCID [Concomitant]
     Active Substance: FAMOTIDINE
     Indication: GASTROOESOPHAGEAL REFLUX DISEASE
     Route: 048
  7. PREDNISONE. [Concomitant]
     Active Substance: PREDNISONE
     Indication: PSORIATIC ARTHROPATHY
     Route: 048
     Dates: start: 2015, end: 201602

REACTIONS (14)
  - Fatigue [Not Recovered/Not Resolved]
  - Blood cholesterol increased [Recovering/Resolving]
  - Asphyxia [Not Recovered/Not Resolved]
  - Epistaxis [Unknown]
  - Haemoptysis [Recovered/Resolved]
  - Myocardial infarction [Recovered/Resolved]
  - Muscular weakness [Not Recovered/Not Resolved]
  - Dysuria [Recovering/Resolving]
  - Coronary artery occlusion [Recovered/Resolved]
  - Asphyxia [Recovered/Resolved]
  - Coronary artery occlusion [Recovering/Resolving]
  - Pain in extremity [Not Recovered/Not Resolved]
  - Venous occlusion [Not Recovered/Not Resolved]
  - Urinary tract infection bacterial [Recovering/Resolving]

NARRATIVE: CASE EVENT DATE: 2015
